FAERS Safety Report 9455658 (Version 2)
Quarter: 2013Q3

REPORT INFORMATION
  Report Type: Spontaneous
  Country: US (occurrence: US)
  Receive Date: 20130813
  Receipt Date: 20130819
  Transmission Date: 20140515
  Serious: Yes (Death, Other)
  Sender: FDA-Public Use
  Company Number: US-JNJFOC-20130805508

PATIENT
  Age: 7 Decade
  Sex: Male

DRUGS (2)
  1. RIVAROXABAN [Suspect]
     Indication: CEREBROVASCULAR ACCIDENT PROPHYLAXIS
     Route: 048
  2. RIVAROXABAN [Suspect]
     Indication: ATRIAL FIBRILLATION
     Route: 048

REACTIONS (4)
  - Death [Fatal]
  - Cardiac failure congestive [Unknown]
  - Ejection fraction decreased [Unknown]
  - Intracardiac thrombus [Unknown]
